FAERS Safety Report 15099157 (Version 2)
Quarter: 2018Q3

REPORT INFORMATION
  Report Type: Spontaneous
  Country: US (occurrence: US)
  Receive Date: 20180702
  Receipt Date: 20180712
  Transmission Date: 20181010
  Serious: No
  Sender: FDA-Public Use
  Company Number: US-TEVA-2018-US-916380

PATIENT
  Age: 62 Year
  Sex: Female
  Weight: 47.67 kg

DRUGS (1)
  1. CLONAZEPAM. [Suspect]
     Active Substance: CLONAZEPAM
     Indication: NIGHTMARE
     Route: 065

REACTIONS (1)
  - Drug effective for unapproved indication [Unknown]
